FAERS Safety Report 15504553 (Version 1)
Quarter: 2018Q4

REPORT INFORMATION
  Report Type: Spontaneous
  Country: US (occurrence: US)
  Receive Date: 20181009
  Receipt Date: 20181009
  Transmission Date: 20190205
  Serious: No
  Sender: FDA-Public Use
  Company Number: None

PATIENT
  Age: 36 Year
  Sex: Male
  Weight: 93 kg

DRUGS (10)
  1. VITAMIN C [Concomitant]
     Active Substance: ASCORBIC ACID
  2. COSENTYX [Suspect]
     Active Substance: SECUKINUMAB
     Indication: ANKYLOSING SPONDYLITIS
     Dosage: ?          QUANTITY:150 MG MILLIGRAM(S);?
     Dates: start: 20180201
  3. CELEXA [Concomitant]
     Active Substance: CITALOPRAM HYDROBROMIDE
  4. ALLEGRA [Concomitant]
     Active Substance: FEXOFENADINE HYDROCHLORIDE
  5. BUSPAR [Concomitant]
     Active Substance: BUSPIRONE HYDROCHLORIDE
  6. LYSINE [Concomitant]
     Active Substance: LYSINE
  7. LOPERAMIDE [Concomitant]
     Active Substance: LOPERAMIDE
  8. ZOFRAN [Concomitant]
     Active Substance: ONDANSETRON HYDROCHLORIDE
  9. MAXALT [Concomitant]
     Active Substance: RIZATRIPTAN BENZOATE
  10. ALBUTEROL HFA [Concomitant]
     Active Substance: ALBUTEROL SULFATE

REACTIONS (7)
  - Fungal infection [None]
  - Pulmonary oedema [None]
  - Pruritus [None]
  - Oral pain [None]
  - Diarrhoea [None]
  - Iritis [None]
  - Pain [None]

NARRATIVE: CASE EVENT DATE: 20180928
